FAERS Safety Report 8980989 (Version 1)
Quarter: 2012Q4

REPORT INFORMATION
  Report Type: 
  Country: PT (occurrence: PT)
  Receive Date: 20121221
  Receipt Date: 20121221
  Transmission Date: 20130627
  Serious: Yes (Hospitalization, Other)
  Sender: FDA-Public Use
  Company Number: PT-ABBOTT-12P-130-1021952-00

PATIENT
  Sex: Male

DRUGS (2)
  1. HUMIRA [Suspect]
     Indication: CROHN^S DISEASE
     Dates: start: 201102, end: 201208
  2. ISONIAZIDE [Concomitant]
     Indication: ANTIBIOTIC PROPHYLAXIS
     Dates: start: 201010

REACTIONS (3)
  - Pulmonary mass [Unknown]
  - Respiratory tract infection [Unknown]
  - Tuberculosis [Recovering/Resolving]
